FAERS Safety Report 8821617 (Version 3)
Quarter: 2012Q4

REPORT INFORMATION
  Report Type: 
  Country: DE (occurrence: DE)
  Receive Date: 20121002
  Receipt Date: 20121230
  Transmission Date: 20130627
  Serious: Yes (Other)
  Sender: FDA-Public Use
  Company Number: FR-ALEXION-A201201784

PATIENT
  Age: 7 Year
  Sex: Male

DRUGS (9)
  1. SOLIRIS 300MG [Suspect]
     Indication: HAEMOLYTIC URAEMIC SYNDROME
     Dosage: 600 mg, single on day of surgery
     Route: 042
  2. SOLIRIS 300MG [Suspect]
     Dosage: 300 mg, qw
     Route: 042
  3. SOLIRIS 300MG [Suspect]
     Dosage: 300 mg, q2w
     Route: 042
  4. SOLIRIS 300MG [Suspect]
     Dosage: 600 mg, qw transient x3
  5. SOLIRIS 300MG [Suspect]
     Dosage: 300 mg, qw resumed
     Route: 042
  6. BASILIXIMAB [Concomitant]
     Indication: IMMUNOSUPPRESSION
  7. TACROLIMUS [Concomitant]
     Indication: IMMUNOSUPPRESSION
  8. MYCOPHENOLATE MOFETIL [Concomitant]
     Indication: IMMUNOSUPPRESSION
  9. STEROID ANTIBACTERIALS [Concomitant]
     Indication: IMMUNOSUPPRESSION

REACTIONS (3)
  - BK virus infection [Unknown]
  - Renal tubular necrosis [Unknown]
  - Upper respiratory tract infection [Unknown]
